FAERS Safety Report 16368743 (Version 2)
Quarter: 2019Q2

REPORT INFORMATION
  Report Type: Report from Study
  Country: US (occurrence: US)
  Receive Date: 20190529
  Receipt Date: 20190627
  Transmission Date: 20190711
  Serious: No
  Sender: FDA-Public Use
  Company Number: US-ALEXION PHARMACEUTICALS INC.-A201907857

PATIENT
  Sex: Female

DRUGS (1)
  1. ULTOMIRIS [Suspect]
     Active Substance: RAVULIZUMAB-CWVZ
     Indication: PRODUCT USED FOR UNKNOWN INDICATION
     Dosage: UNK
     Route: 065

REACTIONS (19)
  - Mean cell haemoglobin concentration decreased [Unknown]
  - Blood urine present [Unknown]
  - Feeling abnormal [Unknown]
  - Blood bilirubin increased [Unknown]
  - Carbon dioxide decreased [Unknown]
  - Mean cell haemoglobin increased [Unknown]
  - Red cell distribution width increased [Unknown]
  - Urine leukocyte esterase positive [Unknown]
  - Haemoglobin decreased [Unknown]
  - White blood cell count decreased [Unknown]
  - Haematocrit decreased [Unknown]
  - Urine ketone body present [Unknown]
  - Mean cell volume increased [Unknown]
  - Urobilinogen urine increased [Unknown]
  - Bilirubin urine present [Unknown]
  - Protein urine present [Unknown]
  - Transferrin saturation decreased [Unknown]
  - Red blood cell count decreased [Unknown]
  - Blood lactate dehydrogenase increased [Unknown]

NARRATIVE: CASE EVENT DATE: 20190220
